FAERS Safety Report 7273732 (Version 3)
Quarter: 2015Q1

REPORT INFORMATION
  Report Type: Spontaneous
  Country: US (occurrence: US)
  Receive Date: 20100209
  Receipt Date: 20150319
  Transmission Date: 20150721
  Serious: Yes (Hospitalization, Other)
  Sender: FDA-Public Use
  Company Number: US-BAYER-201013040NA

PATIENT
  Age: 33 Year
  Sex: Female
  Weight: 97.96 kg

DRUGS (3)
  1. MOTRIN [Concomitant]
     Active Substance: IBUPROFEN
     Indication: HEADACHE
     Dosage: 200 MG, UNK
     Dates: start: 200802
  2. YAZ [Suspect]
     Active Substance: DROSPIRENONE\ETHINYL ESTRADIOL
     Indication: CONTRACEPTION
     Dosage: UNK
     Route: 048
     Dates: start: 200709, end: 200802
  3. MORPHINE [Concomitant]
     Active Substance: MORPHINE

REACTIONS (10)
  - Angina pectoris [None]
  - Procedural pain [None]
  - Quality of life decreased [None]
  - Anxiety [None]
  - Chest discomfort [None]
  - Dyspnoea [None]
  - Acute myocardial infarction [None]
  - Chest pain [None]
  - Depression [None]
  - Palpitations [None]

NARRATIVE: CASE EVENT DATE: 20080220
